FAERS Safety Report 8807493 (Version 2)
Quarter: 2012Q4

REPORT INFORMATION
  Report Type: 
  Country: US (occurrence: US)
  Receive Date: 20120925
  Receipt Date: 20121009
  Transmission Date: 20130627
  Serious: No
  Sender: FDA-Public Use
  Company Number: US-VERTEX PHARMACEUTICAL INC.-2012-021132

PATIENT
  Age: 54 None
  Sex: Female
  Weight: 77 kg

DRUGS (5)
  1. VX-950 [Suspect]
     Indication: HEPATITIS C
     Dosage: 750 mg, tid
     Route: 048
     Dates: start: 20120905
  2. RIBAVIRIN [Concomitant]
     Indication: HEPATITIS C
     Dosage: 1 DF, bid
     Route: 048
     Dates: start: 20120905
  3. RIBAVIRIN [Concomitant]
     Dosage: 600 mg, UNK
     Route: 048
  4. PEGINTERFERON [Concomitant]
     Indication: HEPATITIS C
     Dosage: 180 UNK, UNK
     Route: 058
     Dates: start: 20120905
  5. BENICAR [Concomitant]
     Indication: HYPERTENSION
     Dosage: 12.5 mg, qd
     Route: 048

REACTIONS (4)
  - Fatigue [Not Recovered/Not Resolved]
  - Rash [Not Recovered/Not Resolved]
  - Pruritus [Not Recovered/Not Resolved]
  - Anaemia [Not Recovered/Not Resolved]
